FAERS Safety Report 22356933 (Version 3)
Quarter: 2023Q4

REPORT INFORMATION
  Report Type: Report from Study
  Country: US (occurrence: US)
  Receive Date: 20230523
  Receipt Date: 20231024
  Transmission Date: 20240110
  Serious: Yes (Other)
  Sender: FDA-Public Use
  Company Number: US-ABBVIE-5175849

PATIENT
  Sex: Male

DRUGS (3)
  1. IMBRUVICA [Suspect]
     Active Substance: IBRUTINIB
     Indication: Waldenstrom^s macroglobulinaemia
     Route: 048
     Dates: start: 20211222, end: 202307
  2. IMBRUVICA [Suspect]
     Active Substance: IBRUTINIB
     Indication: Waldenstrom^s macroglobulinaemia
     Dosage: FIRST ADMIN DATE 2023 AND LAST ADMIN DATE-SEP-2023
     Route: 048
  3. IMBRUVICA [Suspect]
     Active Substance: IBRUTINIB
     Indication: Waldenstrom^s macroglobulinaemia
     Dosage: FOR 2 DAYS, FIRST ADMIN DATE-SEP 2023
     Route: 048

REACTIONS (4)
  - Malignant melanoma [Unknown]
  - Heart rate increased [Recovering/Resolving]
  - Malaise [Recovering/Resolving]
  - Cholecystectomy [Recovering/Resolving]

NARRATIVE: CASE EVENT DATE: 20230101
